FAERS Safety Report 15923929 (Version 2)
Quarter: 2020Q1

REPORT INFORMATION
  Report Type: Spontaneous
  Country: US (occurrence: US)
  Receive Date: 20190206
  Receipt Date: 20200316
  Transmission Date: 20200409
  Serious: No
  Sender: FDA-Public Use
  Company Number: US-009507513-1902USA000766

PATIENT
  Age: 73 Year
  Sex: Female

DRUGS (7)
  1. PRAVASTATIN. [Concomitant]
     Active Substance: PRAVASTATIN
  2. TOPROL XL [Concomitant]
     Active Substance: METOPROLOL SUCCINATE
  3. TRIAMTERENE. [Concomitant]
     Active Substance: TRIAMTERENE
  4. ASMANEX HFA [Suspect]
     Active Substance: MOMETASONE FUROATE
     Indication: ASTHMA
     Dosage: TWO PUFFS TWICE A DAY
     Route: 055
  5. ASMANEX HFA [Suspect]
     Active Substance: MOMETASONE FUROATE
     Dosage: TWO PUFFS TWICE A DAY
     Route: 055
  6. VALIUM [Concomitant]
     Active Substance: DIAZEPAM
  7. XANAX [Concomitant]
     Active Substance: ALPRAZOLAM

REACTIONS (5)
  - Underdose [Unknown]
  - Poor quality device used [Unknown]
  - Visual impairment [Recovered/Resolved]
  - Product quality issue [Unknown]
  - Herpes zoster [Recovering/Resolving]

NARRATIVE: CASE EVENT DATE: 201901
